FAERS Safety Report 17294003 (Version 1)
Quarter: 2020Q1

REPORT INFORMATION
  Report Type: Spontaneous
  Country: US (occurrence: US)
  Receive Date: 20200120
  Receipt Date: 20200120
  Transmission Date: 20200409
  Serious: No
  Sender: FDA-Public Use
  Company Number: None

PATIENT
  Age: 54 Year
  Sex: Female
  Weight: 57.6 kg

DRUGS (1)
  1. EMGALITY [Suspect]
     Active Substance: GALCANEZUMAB-GNLM
     Indication: MIGRAINE
     Dates: start: 20191215

REACTIONS (6)
  - Decreased appetite [None]
  - Abnormal weight gain [None]
  - Constipation [None]
  - Abdominal distension [None]
  - Muscle spasms [None]
  - Discomfort [None]

NARRATIVE: CASE EVENT DATE: 20200115
